FAERS Safety Report 23342149 (Version 1)
Quarter: 2023Q4

REPORT INFORMATION
  Report Type: Spontaneous
  Country: US (occurrence: None)
  Receive Date: 20231227
  Receipt Date: 20231227
  Transmission Date: 20240110
  Serious: Yes (Hospitalization)
  Sender: FDA-Public Use
  Company Number: US-ROCHE-3481213

PATIENT
  Age: 75 Year
  Sex: Female
  Weight: 71 kg

DRUGS (4)
  1. ACTIVASE [Suspect]
     Active Substance: ALTEPLASE
     Indication: Ischaemic stroke
     Dosage: NO
     Route: 042
     Dates: start: 20230811, end: 20230811
  2. ACTIVASE [Suspect]
     Active Substance: ALTEPLASE
     Route: 065
  3. ACTIVASE [Suspect]
     Active Substance: ALTEPLASE
     Route: 042
     Dates: start: 20230811, end: 20230811
  4. ACTIVASE [Suspect]
     Active Substance: ALTEPLASE
     Route: 065

REACTIONS (1)
  - Disease progression [Unknown]
